FAERS Safety Report 11008559 (Version 1)
Quarter: 2015Q2

REPORT INFORMATION
  Report Type: Spontaneous
  Country: CA (occurrence: None)
  Receive Date: 20150408
  Receipt Date: 20150408
  Transmission Date: 20150821
  Serious: Yes (Other)
  Sender: FDA-Public Use
  Company Number: 2809091

PATIENT
  Sex: Female

DRUGS (19)
  1. ATORVASTATIN [Concomitant]
     Active Substance: ATORVASTATIN
  2. METOPROLOL [Concomitant]
     Active Substance: METOPROLOL
  3. RAMIPRIL. [Concomitant]
     Active Substance: RAMIPRIL
  4. RISEDRONATE [Concomitant]
     Active Substance: RISEDRONATE SODIUM
  5. DOCETAXEL. [Suspect]
     Active Substance: DOCETAXEL
     Indication: PRODUCT USED FOR UNKNOWN INDICATION
  6. FENTANYL. [Suspect]
     Active Substance: FENTANYL
     Indication: PRODUCT USED FOR UNKNOWN INDICATION
  7. TRASTUZUMAB [Suspect]
     Active Substance: TRASTUZUMAB
     Indication: BREAST CANCER
  8. METOCLOPRAMIDE. [Concomitant]
     Active Substance: METOCLOPRAMIDE
  9. VINORELBINE TARTRATE. [Suspect]
     Active Substance: VINORELBINE TARTRATE
     Indication: PRODUCT USED FOR UNKNOWN INDICATION
  10. ACTONEL [Concomitant]
     Active Substance: RISEDRONATE SODIUM
  11. WELLBUTRIN [Concomitant]
     Active Substance: BUPROPION HYDROCHLORIDE
  12. CORTISONE [Concomitant]
     Active Substance: CORTISONE\HYDROCORTISONE
  13. DULOXETINE [Concomitant]
     Active Substance: DULOXETINE
  14. ZOPICLONE [Concomitant]
     Active Substance: ZOPICLONE
  15. LORAZEPAM. [Concomitant]
     Active Substance: LORAZEPAM
  16. PERCOCET/00446701/) [Concomitant]
  17. TECTA [Concomitant]
     Active Substance: PANTOPRAZOLE MAGNESIUM
  18. ASA [Concomitant]
     Active Substance: ASPIRIN
  19. CLONAZEPAM. [Concomitant]
     Active Substance: CLONAZEPAM

REACTIONS (2)
  - Chemical injury [None]
  - Dizziness [None]
